FAERS Safety Report 17521216 (Version 1)
Quarter: 2020Q1

REPORT INFORMATION
  Report Type: Spontaneous
  Country: US (occurrence: US)
  Receive Date: 20200310
  Receipt Date: 20200310
  Transmission Date: 20200409
  Serious: Yes (Death)
  Sender: FDA-Public Use
  Company Number: US-MYLANLABS-2020M1026194

PATIENT
  Age: 74 Year
  Sex: Female

DRUGS (2)
  1. TEMOZOLOMIDE. [Suspect]
     Active Substance: TEMOZOLOMIDE
     Indication: GLIOBLASTOMA
     Dosage: CHEMORADIATION WITH TEMOZOLOMIDE
     Route: 065
  2. TEMOZOLOMIDE. [Suspect]
     Active Substance: TEMOZOLOMIDE
     Dosage: AFTER CHEMORADIATION FOUR CYCLES OF ADJUVANT TEMOZOLOMIDE
     Route: 065

REACTIONS (2)
  - Glioblastoma [Fatal]
  - Neoplasm recurrence [Fatal]
